FAERS Safety Report 25621744 (Version 2)
Quarter: 2025Q3

REPORT INFORMATION
  Report Type: Spontaneous
  Country: EU (occurrence: EU)
  Receive Date: 20250730
  Receipt Date: 20250804
  Transmission Date: 20251020
  Serious: Yes (Other)
  Sender: SANOFI AVENTIS
  Company Number: EU-KERNPHARMA-20181334

PATIENT
  Age: 72 Year
  Sex: Male

DRUGS (1)
  1. CLOPIDOGREL BISULFATE [Suspect]
     Active Substance: CLOPIDOGREL BISULFATE

REACTIONS (5)
  - Haemorrhoidal haemorrhage [Recovering/Resolving]
  - Rectal haemorrhage [Recovering/Resolving]
  - Thrombosis [Recovering/Resolving]
  - Proctalgia [Recovering/Resolving]
  - Haematochezia [Recovering/Resolving]
